FAERS Safety Report 5258560-7 (Version None)
Quarter: 2007Q1

REPORT INFORMATION
  Report Type: 
  Country: None (occurrence: None)
  Receive Date: 20070305
  Receipt Date: 20070215
  Transmission Date: 20070707
  Serious: Yes (Life-Threatening, Hospitalization)
  Sender: FDA-Public Use
  Company Number: DSA_29446_2007

PATIENT
  Age: 81 Year
  Sex: Female
  Weight: 46.1 kg

DRUGS (3)
  1. LORAZEPAM [Suspect]
     Dosage: 2.5 MG Q DAY PO
     Route: 048
     Dates: start: 20060302, end: 20060322
  2. ZYPREXA [Suspect]
     Dosage: 15 MG BID PO
     Route: 048
     Dates: start: 20060322, end: 20060322
  3. ASPIRIN [Concomitant]

REACTIONS (12)
  - ABNORMAL BEHAVIOUR [None]
  - AGITATION [None]
  - BLOOD CREATININE INCREASED [None]
  - BLOOD GLUCOSE DECREASED [None]
  - DEHYDRATION [None]
  - DEPRESSED LEVEL OF CONSCIOUSNESS [None]
  - FLUID INTAKE REDUCED [None]
  - HALLUCINATION, VISUAL [None]
  - INCORRECT DOSE ADMINISTERED [None]
  - RENAL FAILURE [None]
  - RESTLESSNESS [None]
  - VASCULAR ENCEPHALOPATHY [None]
